FAERS Safety Report 7240949-8 (Version None)
Quarter: 2011Q1

REPORT INFORMATION
  Report Type: 
  Country: None (occurrence: None)
  Receive Date: 20110124
  Receipt Date: 20110120
  Transmission Date: 20110831
  Serious: Yes (Death, Other)
  Sender: FDA-Public Use
  Company Number: PHHY2010DE84967

PATIENT
  Sex: Female
  Weight: 80 kg

DRUGS (2)
  1. VIDAZA [Concomitant]
     Indication: MYELODYSPLASTIC SYNDROME
     Dosage: 75 MG PER DAY
     Route: 058
     Dates: end: 20100701
  2. EXJADE [Suspect]
     Dosage: 1000 MG DAILY
     Route: 048
     Dates: start: 20100201, end: 20100701

REACTIONS (6)
  - NEOPLASM MALIGNANT [None]
  - DEATH [None]
  - PANCYTOPENIA [None]
  - MYELODYSPLASTIC SYNDROME [None]
  - ACUTE MYELOID LEUKAEMIA [None]
  - BLAST CELL COUNT INCREASED [None]
